FAERS Safety Report 9919338 (Version 1)
Quarter: 2014Q1

REPORT INFORMATION
  Report Type: Report from Study
  Country: TR (occurrence: TR)
  Receive Date: 20140224
  Receipt Date: 20140224
  Transmission Date: 20141002
  Serious: Yes (Other)
  Sender: FDA-Public Use
  Company Number: TR-US-EMD SERONO, INC.-7270312

PATIENT
  Sex: Male
  Weight: 80 kg

DRUGS (3)
  1. REBIF [Suspect]
     Indication: MULTIPLE SCLEROSIS
  2. PAROL [Suspect]
     Indication: PAIN
  3. PAROL [Suspect]
     Indication: PYREXIA

REACTIONS (3)
  - Blindness transient [Unknown]
  - Muscle contractions involuntary [Unknown]
  - Fatigue [Unknown]
